FAERS Safety Report 8501332-8 (Version None)
Quarter: 2012Q3

REPORT INFORMATION
  Report Type: 
  Country: None (occurrence: None)
  Receive Date: 20120710
  Receipt Date: 20120627
  Transmission Date: 20120928
  Serious: No
  Sender: FDA-Public Use
  Company Number: US-ASTRAZENECA-2012SE20461

PATIENT
  Age: 64 Year
  Sex: Female

DRUGS (7)
  1. PRAVASTATIN [Concomitant]
     Route: 048
  2. SYMBICORT [Suspect]
     Route: 055
  3. NAPROXEN [Concomitant]
     Route: 048
  4. HYDROCHLOROTHIAZIDE [Concomitant]
     Route: 048
  5. ACETAMINOPHEN [Concomitant]
     Route: 048
  6. ENALAPRIL MALEATE [Concomitant]
     Route: 048
  7. FLEXERIL [Concomitant]
     Route: 048

REACTIONS (8)
  - EYE PAIN [None]
  - DRUG DOSE OMISSION [None]
  - BACK PAIN [None]
  - TREMOR [None]
  - NECK PAIN [None]
  - ASTHMA [None]
  - PYREXIA [None]
  - COUGH [None]
